FAERS Safety Report 6495594-9 (Version None)
Quarter: 2009Q4

REPORT INFORMATION
  Report Type: 
  Country: None (occurrence: None)
  Receive Date: 20091214
  Receipt Date: 20090812
  Transmission Date: 20100525
  Serious: No
  Sender: FDA-Public Use
  Company Number: US-BRISTOL-MYERS SQUIBB COMPANY-14708945

PATIENT
  Age: 80 Year
  Sex: Male

DRUGS (1)
  1. ABILIFY [Suspect]
     Dosage: DECREASED FROM 5 MG

REACTIONS (1)
  - DRUG INEFFECTIVE [None]
